FAERS Safety Report 8481698-8 (Version None)
Quarter: 2012Q3

REPORT INFORMATION
  Report Type: 
  Country: None (occurrence: None)
  Receive Date: 20120702
  Receipt Date: 20120622
  Transmission Date: 20120928
  Serious: Yes (Other)
  Sender: FDA-Public Use
  Company Number: BE-EISAI INC-E7389-02622-CLI-BE

PATIENT
  Sex: Male
  Weight: 84 kg

DRUGS (3)
  1. EPIRUBICIN HYDROCHLORIDE [Suspect]
     Indication: SARCOMA
     Route: 041
     Dates: start: 20120216
  2. ACETAMINOPHEN [Concomitant]
     Route: 065
     Dates: start: 20120315
  3. OMPEPRAZOL [Concomitant]
     Route: 065
     Dates: start: 20110207

REACTIONS (1)
  - HYPERSENSITIVITY [None]
